FAERS Safety Report 22643075 (Version 2)
Quarter: 2023Q2

REPORT INFORMATION
  Report Type: Spontaneous
  Country: US (occurrence: US)
  Receive Date: 20230627
  Receipt Date: 20230627
  Transmission Date: 20230721
  Serious: No
  Sender: FDA-Public Use
  Company Number: US-ALCON LABORATORIES-ALC2023US001084

PATIENT
  Sex: Female

DRUGS (2)
  1. LORATADINE [Suspect]
     Active Substance: LORATADINE
     Indication: Eye pruritus
     Dosage: UNK
     Route: 047
  2. PATADAY ONCE DAILY RELIEF [Suspect]
     Active Substance: OLOPATADINE HYDROCHLORIDE
     Indication: Eye pruritus
     Dosage: UNK
     Route: 047
     Dates: start: 20230221

REACTIONS (2)
  - Drug ineffective [Unknown]
  - Condition aggravated [Recovered/Resolved]

NARRATIVE: CASE EVENT DATE: 20230221
